FAERS Safety Report 8998910 (Version 5)
Quarter: 2013Q2

REPORT INFORMATION
  Report Type: Spontaneous
  Country: US (occurrence: US)
  Receive Date: 20130103
  Receipt Date: 20130410
  Transmission Date: 20140414
  Serious: Yes (Other)
  Sender: FDA-Public Use
  Company Number: US-PFIZER INC-2013000004

PATIENT
  Age: 73 Year
  Sex: Male
  Weight: 104.31 kg

DRUGS (26)
  1. SUTENT [Suspect]
     Indication: METASTATIC RENAL CELL CARCINOMA
     Dosage: 50 MG, 1X/DAY
     Dates: start: 20120409, end: 20130124
  2. SUTENT [Suspect]
     Dosage: 50 MG, 1X/DAY
     Route: 048
     Dates: start: 2012
  3. SUTENT [Suspect]
     Dosage: 50 MG, CYCLIC 28 D ON, FOLLOWED BY 14 D OFF
     Dates: start: 20130301, end: 20130329
  4. METFORMIN [Concomitant]
     Dosage: UNK
  5. EPOETIN ALFA [Concomitant]
     Dosage: UNK, AS NEEDED
  6. VALACICLOVIR [Concomitant]
     Dosage: UNK
  7. DULCOLAX [Concomitant]
     Dosage: UNK
  8. MILK OF MAGNESIA [Concomitant]
     Dosage: UNK
  9. ROBITUSSIN [Concomitant]
     Indication: COUGH
     Dosage: UNK
  10. MYLANTA [Concomitant]
     Dosage: UNK
  11. AMBIEN [Concomitant]
     Dosage: UNK
  12. PERCOCET [Concomitant]
     Dosage: UNK
  13. BENAZEPRIL [Concomitant]
     Dosage: 40 MG, UNK
  14. FERROUS SULFATE [Concomitant]
     Dosage: UNK
  15. ADVAIR [Concomitant]
     Indication: CHRONIC OBSTRUCTIVE PULMONARY DISEASE
     Dosage: UNK
  16. SPIRIVA [Concomitant]
     Indication: CHRONIC OBSTRUCTIVE PULMONARY DISEASE
     Dosage: UNK
  17. GLUCOSAMINE [Concomitant]
     Dosage: 1500 MG, UNK
  18. LOVASTATIN [Concomitant]
     Dosage: 40 MG, UNK
  19. JANUVIA [Concomitant]
     Dosage: 50 MG, UNK
     Dates: end: 20130129
  20. TYLENOL [Concomitant]
     Indication: ARTHRALGIA
     Dosage: UNK, AS NEEDED
  21. VICODIN [Concomitant]
     Dosage: HYDROCODONE BITARTRATE 5, PARACETAMOL 500, AS NEEDED
  22. IMODIUM [Concomitant]
     Indication: DIARRHOEA
     Dosage: UNK, AS NEEDED
  23. CHONDROITIN [Concomitant]
     Dosage: UNK
  24. GLYBURIDE [Concomitant]
     Dosage: 2.5 MG, UNK
  25. IRON PREPARATIONS [Concomitant]
     Dosage: UNK
  26. GLUCOSAMINE CHONDROITIN [Concomitant]
     Dosage: UNK

REACTIONS (18)
  - Chondropathy [Unknown]
  - Second primary malignancy [Unknown]
  - Malignant melanoma [Unknown]
  - Disease progression [Unknown]
  - Metastatic renal cell carcinoma [Unknown]
  - Diarrhoea [Unknown]
  - Oral pain [Unknown]
  - Palmar-plantar erythrodysaesthesia syndrome [Unknown]
  - Hyperaesthesia [Unknown]
  - Dysgeusia [Unknown]
  - Pyrexia [Unknown]
  - Chills [Unknown]
  - Productive cough [Unknown]
  - Nausea [Unknown]
  - Vomiting [Unknown]
  - Diarrhoea [Unknown]
  - Influenza [Unknown]
  - Platelet disorder [Unknown]
